FAERS Safety Report 6023222-5 (Version None)
Quarter: 2008Q4

REPORT INFORMATION
  Report Type: 
  Country: None (occurrence: None)
  Receive Date: 20081230
  Receipt Date: 20081222
  Transmission Date: 20090506
  Serious: Yes (Other)
  Sender: FDA-Public Use
  Company Number: NO-AMGEN-UK313788

PATIENT
  Sex: Female
  Weight: 91 kg

DRUGS (6)
  1. NEULASTA [Suspect]
     Indication: CHEMOTHERAPY
     Route: 058
     Dates: start: 20080725
  2. CISPLATIN [Concomitant]
     Route: 042
     Dates: start: 20080625
  3. FLUOROURACIL [Concomitant]
     Route: 042
     Dates: start: 20080625
  4. CALCIUM FOLINATE [Concomitant]
     Route: 042
     Dates: start: 20080625
  5. ALOXI [Concomitant]
     Route: 042
     Dates: start: 20080723
  6. FORTECORTIN [Concomitant]
     Dates: start: 20080723

REACTIONS (3)
  - CHEST PAIN [None]
  - PELVIC PAIN [None]
  - PULMONARY EMBOLISM [None]
